FAERS Safety Report 8763101 (Version 1)
Quarter: 2012Q4

REPORT INFORMATION
  Report Type: 
  Country: EC (occurrence: EC)
  Receive Date: 20120831
  Receipt Date: 20120831
  Transmission Date: 20130627
  Serious: Yes (Disabling)
  Sender: FDA-Public Use
  Company Number: PHHY2012EC074738

PATIENT
  Sex: Female

DRUGS (2)
  1. EXFORGE [Suspect]
     Indication: HYPERTENSION
     Dosage: 1 DF (160 mg val/ 5 mg amlo) daily
     Route: 048
     Dates: start: 2008
  2. LEVOTHYROXINE [Concomitant]
     Dosage: 1 DF, daily

REACTIONS (1)
  - Joint dislocation [Unknown]
